FAERS Safety Report 6752725-0 (Version None)
Quarter: 2010Q2

REPORT INFORMATION
  Report Type: 
  Country: None (occurrence: None)
  Receive Date: 20100602
  Receipt Date: 20100525
  Transmission Date: 20101027
  Serious: Yes (Death, Other)
  Sender: FDA-Public Use
  Company Number: US-AMGEN-QUU410565

PATIENT
  Sex: Female
  Weight: 62.6 kg

DRUGS (12)
  1. NPLATE [Suspect]
     Indication: IDIOPATHIC THROMBOCYTOPENIC PURPURA
     Dates: start: 20091009, end: 20091009
  2. PRILOSEC [Concomitant]
  3. LIPITOR [Concomitant]
  4. DARVOCET-N 100 [Concomitant]
  5. MAG-LAX [Concomitant]
  6. PREDNISONE [Concomitant]
  7. STOOL SOFTENER [Concomitant]
  8. MULTI-VITAMINS [Concomitant]
  9. TRAVATAN [Concomitant]
     Route: 047
  10. INSULIN [Concomitant]
  11. TYLENOL [Concomitant]
  12. UNSPECIFIED ANTICOAGULANT [Concomitant]

REACTIONS (4)
  - ACUTE RESPIRATORY DISTRESS SYNDROME [None]
  - DRUG INEFFECTIVE [None]
  - NON-HODGKIN'S LYMPHOMA [None]
  - RESPIRATORY FAILURE [None]
